FAERS Safety Report 15013836 (Version 1)
Quarter: 2018Q2

REPORT INFORMATION
  Report Type: Report from Study
  Country: US (occurrence: US)
  Receive Date: 20180614
  Receipt Date: 20180614
  Transmission Date: 20180711
  Serious: Yes (Life-Threatening, Hospitalization, Disabling)
  Sender: FDA-Public Use
  Company Number: US-LA JOLLA PHARMACEUTICAL COMPANY-0000241

PATIENT
  Age: 41 Year
  Sex: Male
  Weight: 75 kg

DRUGS (16)
  1. LEVOPHED [Concomitant]
     Active Substance: NOREPINEPHRINE BITARTRATE
     Dosage: UNK
  2. DEXMEDETOMIDINE. [Concomitant]
     Active Substance: DEXMEDETOMIDINE
  3. VASOPRESSIN                        /00198901/ [Concomitant]
     Dosage: 0.03 UNITS/MIN, UNK
     Dates: start: 20180214
  4. EPINEPHRINE. [Concomitant]
     Active Substance: EPINEPHRINE
     Dosage: 0.02 ?G/KG/MIN, UNK
     Dates: start: 20180212
  5. EPINEPHRINE. [Concomitant]
     Active Substance: EPINEPHRINE
     Dosage: 0.06 ?G/KG/MIN, UNK
     Dates: start: 20180212
  6. EPINEPHRINE. [Concomitant]
     Active Substance: EPINEPHRINE
     Dosage: 0.1 ?G/KG/MIN, UNK
     Dates: start: 20180213
  7. LEVOPHED [Concomitant]
     Active Substance: NOREPINEPHRINE BITARTRATE
     Dosage: 0.18 ?G/KG/MIN, UNK
     Dates: start: 20180212
  8. LEVOPHED [Concomitant]
     Active Substance: NOREPINEPHRINE BITARTRATE
     Dosage: 0.06 UNK, UNK
     Dates: start: 20180214
  9. FENTANYL. [Concomitant]
     Active Substance: FENTANYL
  10. LEVOPHED [Concomitant]
     Active Substance: NOREPINEPHRINE BITARTRATE
     Dosage: 0.25 ?G/KG/MIN, UNK
     Dates: start: 20180212
  11. VASOPRESSIN                        /00198901/ [Concomitant]
     Dosage: 0.03 UNITS/MIN, UNK
     Dates: start: 20180213
  12. VASOPRESSIN                        /00198901/ [Concomitant]
     Dosage: 0.03 UNITS/MIN, UNK
     Dates: start: 20180212
  13. EPINEPHRINE. [Concomitant]
     Active Substance: EPINEPHRINE
     Dosage: 0.12 ?G/KG/MIN, UNK
     Dates: start: 20180214
  14. LEVOPHED [Concomitant]
     Active Substance: NOREPINEPHRINE BITARTRATE
     Dosage: 0.26 ?G/KG/MIN, UNK
     Dates: start: 20180213
  15. DOBUTAMINE                         /00493402/ [Concomitant]
  16. LJPC-501 [Suspect]
     Active Substance: ANGIOTENSIN II
     Indication: SHOCK
     Dosage: 40 NG/KG/MIN, UNK
     Route: 041
     Dates: start: 20180212, end: 20180215

REACTIONS (4)
  - Anaemia [Recovered/Resolved]
  - Thrombocytopenia [Recovered/Resolved]
  - Peripheral ischaemia [Recovering/Resolving]
  - Atrial fibrillation [Recovering/Resolving]

NARRATIVE: CASE EVENT DATE: 20180212
